FAERS Safety Report 5019027-4 (Version None)
Quarter: 2006Q2

REPORT INFORMATION
  Report Type: 
  Country: None (occurrence: None)
  Receive Date: 20060530
  Receipt Date: 20060515
  Transmission Date: 20061013
  Serious: Yes (Disabling, Other)
  Sender: FDA-Public Use
  Company Number: 2006US-02322

PATIENT
  Age: 66 Year
  Sex: Male

DRUGS (1)
  1. GABAPENTIN [Suspect]

REACTIONS (13)
  - ABASIA [None]
  - AREFLEXIA [None]
  - BLOOD CREATININE INCREASED [None]
  - BLOOD UREA INCREASED [None]
  - DRUG LEVEL ABOVE THERAPEUTIC [None]
  - DYSARTHRIA [None]
  - DYSSTASIA [None]
  - FALL [None]
  - FLUID INTAKE REDUCED [None]
  - HYPOAESTHESIA [None]
  - MENTAL RETARDATION SEVERITY UNSPECIFIED [None]
  - MYOCLONUS [None]
  - POSTURE ABNORMAL [None]
